FAERS Safety Report 9962981 (Version 2)
Quarter: 2014Q2

REPORT INFORMATION
  Report Type: Report from Study
  Country: FR (occurrence: FR)
  Receive Date: 20140305
  Receipt Date: 20140402
  Transmission Date: 20141212
  Serious: Yes (Death)
  Sender: FDA-Public Use
  Company Number: FR-PFIZER INC-2014057136

PATIENT
  Age: 79 Year
  Sex: Male

DRUGS (41)
  1. DOXORUBICIN HCL [Suspect]
     Indication: DIFFUSE LARGE B-CELL LYMPHOMA
     Dosage: 56 MG, 1 IN 3 WEEKS
     Dates: start: 20131107, end: 20131217
  2. SOLU-MEDROL [Suspect]
     Indication: DIFFUSE LARGE B-CELL LYMPHOMA
     Dosage: 100 MG, EVERY 3 WEEKS
     Dates: start: 20131107, end: 20131217
  3. CYCLOPHOSPHAMIDE [Suspect]
     Indication: DIFFUSE LARGE B-CELL LYMPHOMA
     Dosage: 860 MG, 1 IN 3 WEEKS
     Dates: start: 20131107, end: 20131217
  4. VINCRISTINE SULFATE [Suspect]
     Indication: DIFFUSE LARGE B-CELL LYMPHOMA
     Dosage: 1.2 MG, 1 IN 3 WEEKS
     Dates: start: 20131107, end: 20131217
  5. RITUXIMAB [Suspect]
     Indication: DIFFUSE LARGE B-CELL LYMPHOMA
     Dosage: 710 MG, 1 IN 3 WEEKS
     Route: 042
     Dates: start: 20131107, end: 20131217
  6. SIMVASTATIN [Concomitant]
     Indication: MYOCARDIAL ISCHAEMIA
     Dosage: 20 MG, 1X/DAY
     Route: 048
     Dates: start: 20131004, end: 20131118
  7. SECTRAL [Concomitant]
     Indication: HYPERTENSION
     Dosage: 200 MG, 2X/DAY
     Route: 048
     Dates: start: 20131004, end: 20131121
  8. SECTRAL [Concomitant]
     Dosage: 200 MG, 2X/DAY
     Route: 048
     Dates: start: 20131125, end: 20131209
  9. SECTRAL [Concomitant]
     Dosage: 200 MG, 2X/DAY
     Route: 048
     Dates: start: 20131210
  10. DIAMICRON [Concomitant]
     Indication: DIABETES MELLITUS
     Dosage: 60 MG, 1X/DAY
     Route: 048
     Dates: start: 20131004, end: 20131118
  11. DIAMICRON [Concomitant]
     Dosage: 60 MG, 1X/DAY
     Route: 048
     Dates: start: 20131121, end: 20131121
  12. DIAMICRON [Concomitant]
     Dosage: 60 MG, 1X/DAY
     Route: 048
     Dates: start: 20131126, end: 20131126
  13. IKOREL [Concomitant]
     Indication: MYOCARDIAL ISCHAEMIA
     Dosage: 20 MG, 2X/DAY
     Route: 048
     Dates: start: 20131004, end: 20131121
  14. IKOREL [Concomitant]
     Dosage: 40 MG, 1X/DAY
     Route: 048
     Dates: start: 20131125
  15. JANUVIA [Concomitant]
     Indication: DIABETES MELLITUS
     Dosage: 100 MG, 1X/DAY
     Route: 048
     Dates: start: 20131004, end: 20131121
  16. JANUVIA [Concomitant]
     Dosage: 100 MG, 1X/DAY
     Route: 048
     Dates: start: 20131126, end: 20131126
  17. KARDEGIC [Concomitant]
     Indication: MYOCARDIAL ISCHAEMIA
     Dosage: 75 MG, 1X/DAY
     Route: 048
     Dates: start: 20131004, end: 20131120
  18. KARDEGIC [Concomitant]
     Dosage: 75 MG, 1X/DAY
     Route: 048
     Dates: start: 20131122, end: 20131209
  19. LASILIX [Concomitant]
     Indication: HYPERTENSION
     Dosage: 20 MG, 1X/DAY
     Route: 048
     Dates: start: 20131004, end: 20131118
  20. LASILIX [Concomitant]
     Dosage: 20 MG, 1X/DAY
     Route: 042
     Dates: start: 20131122, end: 20131125
  21. LASILIX [Concomitant]
     Dosage: UNK
     Dates: start: 20131120, end: 20131121
  22. LASILIX [Concomitant]
     Dosage: 40 MG, 1X/DAY
     Route: 048
     Dates: start: 20131126
  23. ZANIDIP [Concomitant]
     Indication: HYPERTENSION
     Dosage: 10 MG, 1X/DAY
     Route: 048
     Dates: start: 20131004, end: 20131121
  24. ZANIDIP [Concomitant]
     Dosage: 10 MG, 1X/DAY
     Route: 048
     Dates: start: 20131126
  25. TRIATEC [Concomitant]
     Indication: MYOCARDIAL ISCHAEMIA
     Dosage: 5 MG, 1X/DAY
     Dates: start: 20131004, end: 20131120
  26. HEPARINE [Concomitant]
     Indication: PULMONARY EMBOLISM
     Dosage: 15000 IU, 1X/DAY
     Dates: start: 20131122, end: 20131125
  27. CRESTOR [Concomitant]
     Dosage: 20 MG, 1X/DAY
     Route: 048
     Dates: start: 20131120, end: 20131120
  28. CRESTOR [Concomitant]
     Dosage: 20 MG, 1X/DAY
     Route: 048
     Dates: start: 20131126, end: 20131130
  29. CRESTOR [Concomitant]
     Dosage: 20 MG, 1X/DAY
     Route: 048
     Dates: start: 20131202, end: 20131209
  30. DIFFU-K [Concomitant]
     Dosage: 600 MG, 4X/DAY
     Route: 048
     Dates: start: 20131130, end: 20131205
  31. DIFFU-K [Concomitant]
     Dosage: 300 MG, 1 IN 2 D
     Route: 048
     Dates: start: 20131206
  32. EUPANTOL [Concomitant]
     Dosage: 40 MG, 1X/DAY
     Route: 048
     Dates: start: 20131126
  33. INEXIUM [Concomitant]
     Dosage: 40 MG, 1X/DAY
     Route: 042
     Dates: start: 20131121, end: 20131121
  34. INEXIUM [Concomitant]
     Dosage: 40 MG, 1X/DAY
     Route: 048
     Dates: start: 20131122, end: 20131124
  35. DEBRIDAT [Concomitant]
     Dosage: UNK
     Route: 048
     Dates: start: 20131129, end: 20131210
  36. INNOHEP [Concomitant]
     Indication: PULMONARY EMBOLISM
     Dosage: UNK
     Dates: start: 20131126
  37. INSULINE [Concomitant]
     Indication: DIABETES MELLITUS
     Dosage: UNK
     Dates: start: 20131121, end: 20131125
  38. LANTUS [Concomitant]
     Indication: DIABETES MELLITUS
     Dosage: UNK
     Dates: start: 20131127
  39. NOVORAPID [Concomitant]
     Indication: DIABETES MELLITUS
     Dosage: UNK
     Dates: start: 20131129, end: 20131219
  40. RIFAMYCINE [Concomitant]
     Dosage: UNK
     Dates: start: 20131205, end: 20131209
  41. GRANOCYTE 34 [Concomitant]
     Dosage: 34 IU, 1X/DAY
     Dates: start: 20131223

REACTIONS (1)
  - Cardiac arrest [Fatal]
